FAERS Safety Report 4698536-1 (Version None)
Quarter: 2005Q2

REPORT INFORMATION
  Report Type: 
  Country: None (occurrence: None)
  Receive Date: 20050623
  Receipt Date: 20050617
  Transmission Date: 20051028
  Serious: Yes (Hospitalization)
  Sender: FDA-Public Use
  Company Number: 2005CG01130

PATIENT
  Age: 41 Year
  Sex: Female

DRUGS (4)
  1. OMEPRAZOLE [Suspect]
     Route: 048
  2. REMICADE [Suspect]
     Route: 042
  3. NOVATREX [Suspect]
     Route: 048
  4. CORTANCYL [Suspect]
     Route: 048

REACTIONS (6)
  - APHASIA [None]
  - CONVULSION [None]
  - DRUG EFFECT DECREASED [None]
  - HEADACHE [None]
  - INTRACRANIAL PRESSURE INCREASED [None]
  - SUPERIOR SAGITTAL SINUS THROMBOSIS [None]
